FAERS Safety Report 17979004 (Version 1)
Quarter: 2020Q3

REPORT INFORMATION
  Report Type: Report from Study
  Country: JP (occurrence: JP)
  Receive Date: 20200703
  Receipt Date: 20200703
  Transmission Date: 20201103
  Serious: Yes (Other)
  Sender: FDA-Public Use
  Company Number: JP-PFIZER INC-2020253465

PATIENT
  Age: 25 Year
  Sex: Male

DRUGS (4)
  1. DOXORUBICIN HCL [Suspect]
     Active Substance: DOXORUBICIN HYDROCHLORIDE
     Dosage: 25 MG/M2, CYCLIC , IV DRIP  (DAYS 1, 15)
     Route: 041
  2. BLEOMYCIN [Suspect]
     Active Substance: BLEOMYCIN SULFATE
     Dosage: 9 MG/M2, CYCLIC, (MAX. 15MG) DRIP ( DAYS 1, 15)
     Route: 041
  3. DACARBAZINE. [Suspect]
     Active Substance: DACARBAZINE
     Dosage: 250 MG/M2, CYCLIC, DRIP ( DAYS 1, 15)
     Route: 041
  4. VINBLASTINE [Suspect]
     Active Substance: VINBLASTINE
     Dosage: 6  MG/M2, CYCLIC  (MAX. 10MG) ( DAYS 1, 15)
     Route: 042

REACTIONS (2)
  - Neurotoxicity [Recovered/Resolved]
  - Seizure [Recovered/Resolved]
